FAERS Safety Report 13235104 (Version 1)
Quarter: 2017Q1

REPORT INFORMATION
  Report Type: Spontaneous
  Country: DK (occurrence: DK)
  Receive Date: 20170215
  Receipt Date: 20170215
  Transmission Date: 20170428
  Serious: Yes (Hospitalization)
  Sender: FDA-Public Use
  Company Number: DK-PFIZER INC-2017063577

PATIENT
  Age: 8 Year
  Sex: Male

DRUGS (40)
  1. LAMICTAL [Suspect]
     Active Substance: LAMOTRIGINE
     Dosage: UNK
     Dates: start: 201308
  2. APYDAN /00596701/ [Suspect]
     Active Substance: OXCARBAZEPINE
     Indication: EPILEPSY
     Dates: start: 200009
  3. SABRILEX [Suspect]
     Active Substance: VIGABATRIN
     Dosage: UNK
  4. LAMICTAL [Suspect]
     Active Substance: LAMOTRIGINE
     Dosage: UNK
     Dates: start: 200405
  5. KEPPRA [Suspect]
     Active Substance: LEVETIRACETAM
     Dosage: INCREASED
     Dates: start: 200405
  6. KEPPRA [Suspect]
     Active Substance: LEVETIRACETAM
     Dosage: UNK
  7. STESOLID [Concomitant]
     Active Substance: DIAZEPAM
     Indication: EPILEPSY
  8. LYRICA [Suspect]
     Active Substance: PREGABALIN
     Indication: EPILEPSY
     Dosage: UNK
     Dates: start: 201306
  9. ZEBINIX [Suspect]
     Active Substance: ESLICARBAZEPINE ACETATE
     Dosage: REDUCED TO BE DISCONTINUED
     Dates: start: 20130201
  10. FRISIUM [Suspect]
     Active Substance: CLOBAZAM
     Dosage: WITHDRAWN FROM BY REDUCING THE DOSE
     Dates: start: 200203
  11. SABRILEX [Suspect]
     Active Substance: VIGABATRIN
     Dosage: UNK
     Dates: start: 199803
  12. TRILEPTAL [Suspect]
     Active Substance: OXCARBAZEPINE
     Dosage: WITHDRAWN FROM BY REDUCING THE DOSE
     Dates: start: 200203
  13. TRILEPTAL [Suspect]
     Active Substance: OXCARBAZEPINE
     Dosage: UNK
     Dates: start: 201308
  14. FRISIUM [Suspect]
     Active Substance: CLOBAZAM
     Dosage: UNK
     Dates: start: 201403
  15. LAMICTAL [Suspect]
     Active Substance: LAMOTRIGINE
     Indication: EPILEPSY
     Dosage: UNK
     Dates: start: 200203
  16. DEPRAKINE /00228502/ [Suspect]
     Active Substance: VALPROATE SODIUM
     Dosage: UNK
  17. TRILEPTAL [Suspect]
     Active Substance: OXCARBAZEPINE
     Dosage: UNK
     Dates: start: 199905
  18. LYRICA [Suspect]
     Active Substance: PREGABALIN
     Dosage: UNK
     Dates: start: 20141027
  19. ZEBINIX [Suspect]
     Active Substance: ESLICARBAZEPINE ACETATE
     Indication: EPILEPSY
     Dates: start: 201206
  20. FRISIUM [Suspect]
     Active Substance: CLOBAZAM
     Dosage: UNK
     Dates: start: 20141027
  21. FENEMAL ^SAD^ [Suspect]
     Active Substance: PHENOBARBITAL
     Indication: EPILEPSY
     Dates: start: 19960528
  22. KEPPRA [Suspect]
     Active Substance: LEVETIRACETAM
     Indication: EPILEPSY
     Dosage: UNK
  23. INOVELON [Suspect]
     Active Substance: RUFINAMIDE
     Indication: EPILEPSY
     Dates: start: 201112
  24. DEPRAKINE /00228502/ [Suspect]
     Active Substance: VALPROATE SODIUM
     Indication: EPILEPSY
     Dosage: UNK
     Dates: start: 1996, end: 19960624
  25. TRILEPTAL [Suspect]
     Active Substance: OXCARBAZEPINE
     Indication: EPILEPSY
     Dates: start: 19960711
  26. TRILEPTAL [Suspect]
     Active Substance: OXCARBAZEPINE
     Dosage: UNK
     Dates: start: 201403
  27. MELATONIN [Concomitant]
     Active Substance: MELATONIN
     Indication: MIDDLE INSOMNIA
     Dates: start: 1998
  28. FRISIUM [Suspect]
     Active Substance: CLOBAZAM
     Indication: EPILEPSY
     Dosage: UNK
     Dates: start: 199904
  29. SABRILEX [Suspect]
     Active Substance: VIGABATRIN
     Indication: EPILEPSY
     Dosage: UNK
     Dates: start: 19960617
  30. SABRILEX [Suspect]
     Active Substance: VIGABATRIN
     Dosage: REDUCED
     Dates: start: 19981204
  31. LAMICTAL [Suspect]
     Active Substance: LAMOTRIGINE
     Dosage: INCREASED
     Dates: start: 20141027
  32. LYRICA [Suspect]
     Active Substance: PREGABALIN
     Dosage: UNK
     Dates: start: 201403
  33. FRISIUM [Suspect]
     Active Substance: CLOBAZAM
     Dosage: UNK
     Dates: start: 200405
  34. LAMICTAL [Suspect]
     Active Substance: LAMOTRIGINE
     Dosage: UNK
     Dates: start: 20141002
  35. VIMPAT [Suspect]
     Active Substance: LACOSAMIDE
     Dosage: UNK
     Dates: start: 201401
  36. TOPIMAX /01201701/ [Suspect]
     Active Substance: TOPIRAMATE
     Indication: EPILEPSY
  37. TOPIMAX /01201701/ [Suspect]
     Active Substance: TOPIRAMATE
     Dosage: GRADUALLY WITHDREW
     Dates: start: 200405
  38. GABAPENTIN. [Suspect]
     Active Substance: GABAPENTIN
     Indication: EPILEPSY
     Dosage: UNK
     Dates: start: 19960731
  39. VIMPAT [Suspect]
     Active Substance: LACOSAMIDE
     Indication: EPILEPSY
     Dates: start: 20130201
  40. DEPRAKINE /00228502/ [Suspect]
     Active Substance: VALPROATE SODIUM
     Dosage: REDUCED
     Dates: start: 199803

REACTIONS (3)
  - Osteoporosis [Unknown]
  - Drug ineffective [Unknown]
  - Upper limb fracture [Unknown]

NARRATIVE: CASE EVENT DATE: 200409
